FAERS Safety Report 7985158-X (Version None)
Quarter: 2011Q4

REPORT INFORMATION
  Report Type: 
  Country: None (occurrence: None)
  Receive Date: 20111216
  Receipt Date: 20111213
  Transmission Date: 20120403
  Serious: Yes (Death, Other)
  Sender: FDA-Public Use
  Company Number: PHHY2011CA59476

PATIENT
  Sex: Male

DRUGS (5)
  1. LIPITOR [Concomitant]
     Dosage: 10 MG, Q HS
     Dates: start: 20090224
  2. ZYPREXA [Suspect]
     Dosage: 20 MG, QHS
     Dates: start: 20090224
  3. INDERAL [Suspect]
     Dosage: 40 MG, TID
     Dates: start: 20071123
  4. PHENERGAN [Suspect]
     Dosage: 50 TO 100 MG Q HS
     Dates: start: 20071123
  5. CLOZARIL [Suspect]
     Indication: SCHIZOPHRENIA
     Dosage: 700 MG,
     Route: 048
     Dates: start: 19920330

REACTIONS (5)
  - DEATH [None]
  - ANTIPSYCHOTIC DRUG LEVEL INCREASED [None]
  - METABOLIC SYNDROME [None]
  - GENERAL PHYSICAL HEALTH DETERIORATION [None]
  - APATHY [None]
